FAERS Safety Report 13108623 (Version 3)
Quarter: 2017Q1

REPORT INFORMATION
  Report Type: Report from Study
  Country: NL (occurrence: NL)
  Receive Date: 20170112
  Receipt Date: 20170117
  Transmission Date: 20170428
  Serious: Yes (Death, Other)
  Sender: FDA-Public Use
  Company Number: NL-PFIZER INC-2017011471

PATIENT
  Age: 17 Year
  Sex: Male

DRUGS (1)
  1. PROPOFOL. [Suspect]
     Active Substance: PROPOFOL
     Indication: SEDATIVE THERAPY
     Dosage: 6.6 MG/KG, (6.6 MG/KG/HR)
     Route: 041

REACTIONS (3)
  - Ventricular arrhythmia [Fatal]
  - Propofol infusion syndrome [Unknown]
  - Electrocardiogram ST segment elevation [Fatal]
